FAERS Safety Report 10551079 (Version 1)
Quarter: 2014Q4

REPORT INFORMATION
  Report Type: Spontaneous
  Country: CN (occurrence: None)
  Receive Date: 20141027
  Receipt Date: 20141027
  Transmission Date: 20150529
  Serious: Yes (Hospitalization, Other)
  Sender: FDA-Public Use
  Company Number: 2014JUB00165

PATIENT
  Age: 75 Year
  Sex: Female

DRUGS (2)
  1. OLANZAPINE (OLANZAPINE) UNKNOWN [Suspect]
     Active Substance: OLANZAPINE
     Indication: SCHIZOPHRENIA
     Dates: start: 201203, end: 20120608
  2. OLANZAPINE (OLANZAPINE) UNKNOWN [Suspect]
     Active Substance: OLANZAPINE
     Indication: SUICIDAL IDEATION
     Dates: start: 201203, end: 20120608

REACTIONS (4)
  - Hypokalaemia [None]
  - Torsade de pointes [None]
  - Ventricular tachycardia [None]
  - Electrocardiogram QT prolonged [None]

NARRATIVE: CASE EVENT DATE: 20120318
